FAERS Safety Report 5866492-6 (Version None)
Quarter: 2008Q3

REPORT INFORMATION
  Report Type: 
  Country: None (occurrence: None)
  Receive Date: 20080902
  Receipt Date: 20080902
  Transmission Date: 20090109
  Serious: Yes (Hospitalization)
  Sender: FDA-Public Use
  Company Number: PHEH1996US02142

PATIENT
  Sex: Male
  Weight: 81 kg

DRUGS (9)
  1. SANDIMMUNE [Suspect]
     Route: 048
     Dates: start: 19960404
  2. IMURAN [Concomitant]
  3. PREDNISONE TAB [Concomitant]
  4. AXID [Concomitant]
  5. COLACE (DOCUSATE SODIUM) [Concomitant]
  6. BACTRIM DS [Concomitant]
  7. MYCOSTATIN [Concomitant]
  8. GANCICLOVIR [Concomitant]
  9. CLONIDINE [Concomitant]

REACTIONS (1)
  - HALLUCINATION [None]
